FAERS Safety Report 17201548 (Version 1)
Quarter: 2019Q4

REPORT INFORMATION
  Report Type: Spontaneous
  Country: US (occurrence: US)
  Receive Date: 20191226
  Receipt Date: 20191226
  Transmission Date: 20200122
  Serious: Yes (Congenital Anomaly, Other)
  Sender: FDA-Public Use
  Company Number: US-AKORN PHARMACEUTICALS-2019AKN02554

PATIENT

DRUGS (4)
  1. TOPAMAX [Concomitant]
     Active Substance: TOPIRAMATE
     Route: 064
  2. MYORISAN [Suspect]
     Active Substance: ISOTRETINOIN
     Route: 064
  3. MYORISAN [Suspect]
     Active Substance: ISOTRETINOIN
     Route: 064
  4. UNSPECIFIED COMBINATION ORAL CONTRACEPTIVE [Concomitant]
     Route: 064

REACTIONS (3)
  - Congenital cerebellar agenesis [Not Recovered/Not Resolved]
  - Foetal exposure during pregnancy [Recovered/Resolved]
  - Aberrant aortic arch [Not Recovered/Not Resolved]

NARRATIVE: CASE EVENT DATE: 20190601
